FAERS Safety Report 5044749-9 (Version None)
Quarter: 2006Q3

REPORT INFORMATION
  Report Type: 
  Country: None (occurrence: None)
  Receive Date: 20060707
  Receipt Date: 20060629
  Transmission Date: 20061208
  Serious: Yes (Life-Threatening)
  Sender: FDA-Public Use
  Company Number: JP-ABBOTT-06P-087-0337355-00

PATIENT
  Sex: Male

DRUGS (6)
  1. KALETRA [Suspect]
     Indication: HIV INFECTION
     Route: 048
     Dates: start: 20050401
  2. KALETRA [Suspect]
     Route: 048
     Dates: start: 20020709, end: 20020829
  3. ZIDOVUDINE [Concomitant]
     Indication: HIV INFECTION
     Route: 048
     Dates: start: 20050401
  4. ZIDOVUDINE [Concomitant]
     Route: 048
     Dates: start: 20020709, end: 20020829
  5. LAMIVUDINE [Concomitant]
     Indication: HIV INFECTION
     Route: 048
     Dates: start: 20050401
  6. LAMIVUDINE [Concomitant]
     Route: 048
     Dates: start: 20020709, end: 20020829

REACTIONS (1)
  - HERPES ZOSTER [None]
